FAERS Safety Report 8432087-3 (Version None)
Quarter: 2012Q2

REPORT INFORMATION
  Report Type: 
  Country: None (occurrence: None)
  Receive Date: 20120606
  Receipt Date: 20120522
  Transmission Date: 20120825
  Serious: Yes (Other)
  Sender: FDA-Public Use
  Company Number: JP-2012-13407

PATIENT
  Age: 91 Year
  Sex: Male
  Weight: 52.0276 kg

DRUGS (3)
  1. TRICHLORMETHIAZIDE [Suspect]
     Indication: CARDIAC FAILURE
     Dosage: 2 MG MILLIGRAM(S), DAILY DOSE, ORAL
     Route: 048
  2. SAMSCA [Suspect]
     Indication: FLUID RETENTION
     Dosage: 15 MG MILLIGRAM(S), QAM, ORAL
     Route: 048
     Dates: start: 20111223, end: 20111230
  3. FUROSEMIDE [Suspect]
     Indication: CARDIAC FAILURE
     Dosage: 60 MG MILLIGRAM(S), DAILY DOSE, ORAL
     Route: 048

REACTIONS (2)
  - RENAL IMPAIRMENT [None]
  - DEHYDRATION [None]
